FAERS Safety Report 6546518-7 (Version None)
Quarter: 2010Q1

REPORT INFORMATION
  Report Type: 
  Country: None (occurrence: None)
  Receive Date: 20100114
  Receipt Date: 20091106
  Transmission Date: 20100710
  Serious: No
  Sender: FDA-Public Use
  Company Number: 2009BM000303

PATIENT
  Age: 43 Year
  Sex: Female
  Weight: 66.2252 kg

DRUGS (12)
  1. KUVAN [Suspect]
     Indication: PHENYLKETONURIA
     Dosage: 1200 MG;QD;PO
     Route: 048
     Dates: start: 20091016
  2. PREVACID [Concomitant]
  3. NASONEX [Concomitant]
  4. ZYRTEC [Concomitant]
  5. CITALOPRAM HYDROBROMIDE [Concomitant]
  6. MULTI-VITAMINS [Concomitant]
  7. CALCIUM [Concomitant]
  8. OMEGA-3 FATTY ACIDS [Concomitant]
  9. THORAZINE /00011901/ [Concomitant]
  10. TREXIMET [Concomitant]
  11. LEVONORGESTREL AND ETHINYL ESTRADIOL [Concomitant]
  12. INFLUENZA VACCINE [Concomitant]

REACTIONS (5)
  - HEADACHE [None]
  - HYPERTENSION [None]
  - INFLUENZA [None]
  - PAIN [None]
  - PYREXIA [None]
